FAERS Safety Report 6876933-3 (Version None)
Quarter: 2010Q3

REPORT INFORMATION
  Report Type: 
  Country: None (occurrence: None)
  Receive Date: 20100727
  Receipt Date: 20100716
  Transmission Date: 20110219
  Serious: Yes (Other)
  Sender: FDA-Public Use
  Company Number: FR-ELI_LILLY_AND_COMPANY-FR201007003539

PATIENT
  Sex: Male

DRUGS (2)
  1. GEMZAR [Suspect]
     Indication: ADENOCARCINOMA
     Dosage: 2275 MG, UNKNOWN
     Route: 042
     Dates: start: 20100521, end: 20100528
  2. METHYLPREDNISOLONE MERCK [Concomitant]
     Indication: PREMEDICATION
     Dosage: 60 MG, DAILY (1/D)
     Route: 042
     Dates: start: 20100528, end: 20100528

REACTIONS (2)
  - FURUNCLE [None]
  - URTICARIA [None]
